FAERS Safety Report 5386154-1 (Version None)
Quarter: 2007Q3

REPORT INFORMATION
  Report Type: 
  Country: None (occurrence: None)
  Receive Date: 20070713
  Receipt Date: 20070702
  Transmission Date: 20080115
  Serious: Yes (Other)
  Sender: FDA-Public Use
  Company Number: US-JNJFOC-20070403924

PATIENT
  Sex: Male

DRUGS (3)
  1. REMICADE [Suspect]
     Route: 042
  2. REMICADE [Suspect]
     Indication: CROHN'S DISEASE
     Route: 042
  3. TOPROL-XL [Concomitant]
     Indication: CARDIAC DISORDER

REACTIONS (2)
  - ALOPECIA [None]
  - GASTROINTESTINAL FUNGAL INFECTION [None]
